FAERS Safety Report 11878063 (Version 1)
Quarter: 2015Q4

REPORT INFORMATION
  Report Type: Spontaneous
  Country: US (occurrence: US)
  Receive Date: 20151230
  Receipt Date: 20151230
  Transmission Date: 20160305
  Serious: No
  Sender: FDA-Public Use
  Company Number: PHEH2015US027236

PATIENT
  Sex: Female
  Weight: 56.69 kg

DRUGS (1)
  1. EXTAVIA [Suspect]
     Active Substance: INTERFERON BETA-1B
     Indication: MULTIPLE SCLEROSIS
     Dosage: UNK
     Route: 065
     Dates: start: 20100325

REACTIONS (4)
  - Elevated mood [Unknown]
  - Euphoric mood [Unknown]
  - Psychomotor hyperactivity [Unknown]
  - Weight decreased [Recovered/Resolved]
